FAERS Safety Report 5694710-6 (Version None)
Quarter: 2008Q2

REPORT INFORMATION
  Report Type: 
  Country: None (occurrence: None)
  Receive Date: 20080404
  Receipt Date: 20080327
  Transmission Date: 20081010
  Serious: Yes (Other)
  Sender: FDA-Public Use
  Company Number: B0514187A

PATIENT
  Sex: Male

DRUGS (4)
  1. ZIAGEN [Suspect]
     Indication: HIV INFECTION
     Route: 048
     Dates: start: 20070201
  2. TELZIR [Suspect]
     Indication: HIV INFECTION
     Route: 048
  3. VIREAD [Suspect]
     Indication: HIV INFECTION
     Route: 048
     Dates: end: 20070201
  4. SUSTIVA [Suspect]
     Indication: HIV INFECTION
     Route: 048

REACTIONS (2)
  - MYOCARDIAL INFARCTION [None]
  - RENAL FAILURE [None]
